FAERS Safety Report 6931383-6 (Version None)
Quarter: 2010Q3

REPORT INFORMATION
  Report Type: 
  Country: None (occurrence: None)
  Receive Date: 20100819
  Receipt Date: 20100813
  Transmission Date: 20110219
  Serious: Yes (Hospitalization)
  Sender: FDA-Public Use
  Company Number: JP-JNJFOC-20100708122

PATIENT
  Age: 9 Year
  Sex: Male

DRUGS (9)
  1. TOPIRAMATE [Suspect]
     Indication: EPILEPSY
     Route: 048
  2. RIVOTRIL [Concomitant]
     Indication: EPILEPSY
     Route: 048
  3. RIVOTRIL [Concomitant]
     Route: 048
  4. RIVOTRIL [Concomitant]
     Route: 048
  5. RIVOTRIL [Concomitant]
     Route: 048
  6. RIVOTRIL [Concomitant]
     Route: 048
  7. DEPAKENE [Concomitant]
     Indication: EPILEPSY
     Route: 048
  8. BENZALIN [Concomitant]
     Indication: EPILEPSY
     Route: 048
  9. MAGNESIUM OXIDE [Concomitant]
     Indication: EPILEPSY
     Route: 048

REACTIONS (2)
  - BRADYKINESIA [None]
  - BRADYPHRENIA [None]
